FAERS Safety Report 23841740 (Version 1)
Quarter: 2024Q2

REPORT INFORMATION
  Report Type: Spontaneous
  Country: US (occurrence: US)
  Receive Date: 20240510
  Receipt Date: 20240510
  Transmission Date: 20240715
  Serious: No
  Sender: FDA-Public Use
  Company Number: US-COLLEGIUM PHARMACEUTICAL, INC.-20230500428

PATIENT

DRUGS (2)
  1. XTAMPZA ER [Suspect]
     Active Substance: OXYCODONE
     Indication: Back pain
     Dosage: 13.5 MILLIGRAM, EVERY 12 HOURS
     Route: 048
     Dates: start: 2018
  2. UNSPECIFIED INGREDIENT [Concomitant]
     Active Substance: UNSPECIFIED INGREDIENT
     Indication: Neoplasm malignant
     Dosage: UNK, UNKNOWN
     Route: 065

REACTIONS (2)
  - Therapeutic response decreased [Unknown]
  - Pain [Unknown]

NARRATIVE: CASE EVENT DATE: 20230201
